FAERS Safety Report 8694225 (Version 6)
Quarter: 2012Q4

REPORT INFORMATION
  Report Type: Report from Study
  Country: AT (occurrence: AT)
  Receive Date: 20120731
  Receipt Date: 20121003
  Transmission Date: 20130627
  Serious: Yes (Death, Hospitalization, Other)
  Sender: FDA-Public Use
  Company Number: AT-BRISTOL-MYERS SQUIBB COMPANY-16794158

PATIENT
  Age: 86 Year
  Sex: Male

DRUGS (4)
  1. IPILIMUMAB [Suspect]
     Indication: METASTATIC MALIGNANT MELANOMA
     Dosage: No of courses:3
     Route: 042
     Dates: start: 20120516
  2. THROMBO ASS [Concomitant]
     Dates: start: 20120416
  3. INSULIN [Concomitant]
  4. PRAVASTATIN SODIUM [Concomitant]
     Dates: start: 20120412

REACTIONS (2)
  - Pneumonia [Fatal]
  - Diarrhoea [Recovered/Resolved]
